FAERS Safety Report 17283478 (Version 1)
Quarter: 2020Q1

REPORT INFORMATION
  Report Type: Spontaneous
  Country: US (occurrence: US)
  Receive Date: 20200117
  Receipt Date: 20200117
  Transmission Date: 20200409
  Serious: Yes (Hospitalization)
  Sender: FDA-Public Use
  Company Number: None

PATIENT
  Age: 64 Year
  Sex: Female

DRUGS (11)
  1. ATORVASTATIN [Concomitant]
     Active Substance: ATORVASTATIN
  2. ISOSORB [Concomitant]
  3. METFORMIN [Concomitant]
     Active Substance: METFORMIN HYDROCHLORIDE
  4. FUROSEMIDE. [Concomitant]
     Active Substance: FUROSEMIDE
  5. MUPIROCIN. [Concomitant]
     Active Substance: MUPIROCIN
  6. OXYCODONE [Concomitant]
     Active Substance: OXYCODONE
  7. CARVEDILOL. [Concomitant]
     Active Substance: CARVEDILOL
  8. LATANOPROST. [Concomitant]
     Active Substance: LATANOPROST
  9. LISINOPRIL. [Concomitant]
     Active Substance: LISINOPRIL
  10. CLOPIDILOL [Concomitant]
  11. REPATHA [Suspect]
     Active Substance: EVOLOCUMAB
     Indication: HYPERLIPIDAEMIA
     Dosage: ?          OTHER FREQUENCY:EVERY 14 DAYS;?
     Route: 058
     Dates: start: 20190529

REACTIONS (1)
  - Coronary artery bypass [None]

NARRATIVE: CASE EVENT DATE: 20200106
